FAERS Safety Report 16419821 (Version 2)
Quarter: 2019Q3

REPORT INFORMATION
  Report Type: Spontaneous
  Country: ES (occurrence: ES)
  Receive Date: 20190612
  Receipt Date: 20190704
  Transmission Date: 20191004
  Serious: Yes (Death, Hospitalization)
  Sender: FDA-Public Use
  Company Number: ES-PFIZER INC-2019248888

PATIENT
  Age: 75 Year
  Sex: Male
  Weight: 69.7 kg

DRUGS (5)
  1. METHYLPREDNISOLONE SODIUM SUCCINATE. [Suspect]
     Active Substance: METHYLPREDNISOLONE SODIUM SUCCINATE
     Dosage: 2 MG/KG, UNK
     Route: 042
  2. METHYLPREDNISOLONE SODIUM SUCCINATE. [Suspect]
     Active Substance: METHYLPREDNISOLONE SODIUM SUCCINATE
     Dosage: 1 MG/KG, UNK
     Route: 042
  3. CORTISONE [Concomitant]
     Active Substance: CORTISONE
  4. METHYLPREDNISOLONE SODIUM SUCCINATE. [Suspect]
     Active Substance: METHYLPREDNISOLONE SODIUM SUCCINATE
     Dosage: 1 G, FOR 5 DAYS
     Route: 042
  5. TECENTRIQ [Suspect]
     Active Substance: ATEZOLIZUMAB
     Indication: NON-SMALL CELL LUNG CANCER
     Dosage: 1200 MG, EVERY 3 WEEKS
     Route: 042
     Dates: start: 20181105, end: 20181111

REACTIONS (5)
  - Myopathy [Unknown]
  - Encephalitis [Recovered/Resolved with Sequelae]
  - Respiratory failure [Fatal]
  - Psychotic disorder [Unknown]
  - Respiratory tract infection [Fatal]

NARRATIVE: CASE EVENT DATE: 20181111
